FAERS Safety Report 17183842 (Version 1)
Quarter: 2019Q4

REPORT INFORMATION
  Report Type: Spontaneous
  Country: US (occurrence: US)
  Receive Date: 20191219
  Receipt Date: 20191219
  Transmission Date: 20200122
  Serious: Yes (Other)
  Sender: FDA-Public Use
  Company Number: None

PATIENT
  Age: 62 Year
  Sex: Male
  Weight: 81.2 kg

DRUGS (6)
  1. ETOPOSIDE  INJECTION USP [Suspect]
     Active Substance: ETOPOSIDE
     Indication: SMALL CELL LUNG CANCER
     Dosage: ?          OTHER FREQUENCY:PER CHEMO SCHEDULE;?
     Route: 041
     Dates: start: 20191120
  2. SODIUM CHLORIDE INFUSION 1000 ML IV [Concomitant]
     Dates: start: 20191210
  3. CISPLATIN 80MG/M2= 159MG, MANNITOL 25 G IN DEXTROSE 5% [Concomitant]
     Dates: start: 20191210
  4. PALONOSETRON HCL INJECTION 0.25 MG [Concomitant]
     Dates: start: 20191210
  5. DEXMETHASONE SODIUM PHOSPHATE 12 MG IN NS IV [Concomitant]
     Dates: start: 20191210
  6. FOSAPREPITANT 150 MG IN NS IV [Concomitant]
     Dates: start: 20191210

REACTIONS (3)
  - Burning sensation [None]
  - Nausea [None]
  - Infusion related reaction [None]

NARRATIVE: CASE EVENT DATE: 20191210
